FAERS Safety Report 9289339 (Version 3)
Quarter: 2013Q2

REPORT INFORMATION
  Report Type: Spontaneous
  Country: US (occurrence: US)
  Receive Date: 20130514
  Receipt Date: 20130616
  Transmission Date: 20140414
  Serious: Yes (Other)
  Sender: FDA-Public Use
  Company Number: US-PFIZER INC-2013147107

PATIENT
  Age: 55 Year
  Sex: Female

DRUGS (9)
  1. CELEBREX [Suspect]
     Indication: ARTHRALGIA
     Dosage: 200 MG, 2X/DAY, PRN
  2. CELEBREX [Suspect]
     Indication: ARTHRITIS
  3. NORETHINDRONE [Concomitant]
     Dosage: UNK
  4. AMLODIPINE [Concomitant]
     Dosage: UNK
  5. CYCLOBENZAPRINE [Concomitant]
     Dosage: UNK
  6. ZANTAC [Concomitant]
     Dosage: UNK
  7. SERTRALINE [Concomitant]
     Dosage: UNK
  8. LISINOPRIL [Concomitant]
     Dosage: UNK
  9. FLONASE [Concomitant]
     Dosage: UNK

REACTIONS (4)
  - Multiple sclerosis [Unknown]
  - Fall [Unknown]
  - Motor dysfunction [Unknown]
  - Impaired work ability [Unknown]
